FAERS Safety Report 11257269 (Version 2)
Quarter: 2015Q3

REPORT INFORMATION
  Report Type: Report from Study
  Country: US (occurrence: US)
  Receive Date: 20150709
  Receipt Date: 20150806
  Transmission Date: 20151125
  Serious: Yes (Hospitalization, Other)
  Sender: FDA-Public Use
  Company Number: US-AMGEN-USASL2015067023

PATIENT
  Age: 56 Year
  Sex: Female

DRUGS (1)
  1. ENBREL [Suspect]
     Active Substance: ETANERCEPT
     Indication: RHEUMATOID ARTHRITIS
     Dosage: 50 MG, QWK
     Route: 065
     Dates: start: 20141216

REACTIONS (6)
  - Cardiac pacemaker insertion [Recovered/Resolved]
  - Infection [Unknown]
  - Pain [Unknown]
  - Post procedural discharge [Not Recovered/Not Resolved]
  - Cardiac pacemaker removal [Unknown]
  - Incision site erythema [Not Recovered/Not Resolved]

NARRATIVE: CASE EVENT DATE: 201507
